FAERS Safety Report 17301277 (Version 2)
Quarter: 2020Q1

REPORT INFORMATION
  Report Type: Spontaneous
  Country: US (occurrence: US)
  Receive Date: 20200122
  Receipt Date: 20200224
  Transmission Date: 20200409
  Serious: No
  Sender: FDA-Public Use
  Company Number: US-009507513-2001USA004812

PATIENT
  Age: 49 Year
  Sex: Male

DRUGS (2)
  1. INVANZ [Suspect]
     Active Substance: ERTAPENEM SODIUM
     Indication: ACTINOMYCES TEST POSITIVE
     Dosage: FOR 4 WEEKS
  2. INVANZ [Suspect]
     Active Substance: ERTAPENEM SODIUM
     Indication: STREPTOCOCCAL INFECTION

REACTIONS (1)
  - Off label use [Unknown]
